FAERS Safety Report 20650832 (Version 1)
Quarter: 2022Q1

REPORT INFORMATION
  Report Type: Spontaneous
  Country: US (occurrence: US)
  Receive Date: 20220329
  Receipt Date: 20220329
  Transmission Date: 20220423
  Serious: Yes (Life-Threatening, Hospitalization, Other)
  Sender: FDA-Public Use
  Company Number: US-GLAXOSMITHKLINE-US2022GSK056316

PATIENT
  Age: 30 Year
  Sex: Female

DRUGS (1)
  1. LAMOTRIGINE [Suspect]
     Active Substance: LAMOTRIGINE
     Indication: Seizure
     Dosage: UNK

REACTIONS (15)
  - Eosinophilic myocarditis [Unknown]
  - Drug reaction with eosinophilia and systemic symptoms [Unknown]
  - Ventricular tachycardia [Unknown]
  - Cardiac arrest [Unknown]
  - Pyrexia [Unknown]
  - Rash [Unknown]
  - Lymphadenopathy [Unknown]
  - Eosinophilia [Unknown]
  - Condition aggravated [Unknown]
  - Pericarditis [Unknown]
  - Chest pain [Unknown]
  - Hypotension [Unknown]
  - Tachycardia [Unknown]
  - Troponin increased [Unknown]
  - Electrocardiogram change [Unknown]
